FAERS Safety Report 11173777 (Version 2)
Quarter: 2015Q3

REPORT INFORMATION
  Report Type: Spontaneous
  Country: US (occurrence: US)
  Receive Date: 20150609
  Receipt Date: 20150725
  Transmission Date: 20151125
  Serious: No
  Sender: FDA-Public Use
  Company Number: US-009507513-1506USA004109

PATIENT
  Age: 73 Year
  Sex: Male
  Weight: 83.45 kg

DRUGS (1)
  1. DULERA [Suspect]
     Active Substance: FORMOTEROL FUMARATE DIHYDRATE\MOMETASONE FUROATE
     Indication: CHRONIC OBSTRUCTIVE PULMONARY DISEASE
     Dosage: 2 PUFFS, TWICE DAILY
     Route: 055
     Dates: start: 20150402, end: 20150619

REACTIONS (5)
  - Drug administration error [Unknown]
  - Blood glucose increased [Recovered/Resolved]
  - Choking sensation [Recovering/Resolving]
  - Productive cough [Recovering/Resolving]
  - Oropharyngeal pain [Recovering/Resolving]

NARRATIVE: CASE EVENT DATE: 2015
